FAERS Safety Report 14351238 (Version 2)
Quarter: 2018Q1

REPORT INFORMATION
  Report Type: Spontaneous
  Country: JP (occurrence: JP)
  Receive Date: 20180104
  Receipt Date: 20180105
  Transmission Date: 20180509
  Serious: Yes (Other)
  Sender: FDA-Public Use
  Company Number: JP-ASTRAZENECA-2017SF25146

PATIENT
  Age: 14439 Day
  Sex: Male
  Weight: 95 kg

DRUGS (7)
  1. MUCOSTA [Concomitant]
     Active Substance: REBAMIPIDE
     Dosage: DAILY
     Route: 048
  2. LOXONIN [Concomitant]
     Active Substance: LOXOPROFEN SODIUM
     Dosage: DAILY
     Route: 048
  3. TRESIBA [Concomitant]
     Active Substance: INSULIN DEGLUDEC
     Route: 058
  4. GLIMEPIRIDE. [Concomitant]
     Active Substance: GLIMEPIRIDE
     Dosage: 1.0MG UNKNOWN
     Route: 048
  5. FORXIGA [Suspect]
     Active Substance: DAPAGLIFLOZIN
     Indication: TYPE 2 DIABETES MELLITUS
     Route: 048
     Dates: start: 2014, end: 20171106
  6. GLACTIV [Concomitant]
     Active Substance: SITAGLIPTIN
     Route: 048
  7. FORXIGA [Suspect]
     Active Substance: DAPAGLIFLOZIN
     Indication: GLUCOSE URINE
     Route: 048
     Dates: start: 2014, end: 20171106

REACTIONS (1)
  - Balanoposthitis infective [Recovering/Resolving]

NARRATIVE: CASE EVENT DATE: 20171106
